FAERS Safety Report 7962170-8 (Version None)
Quarter: 2011Q4

REPORT INFORMATION
  Report Type: 
  Country: None (occurrence: None)
  Receive Date: 20111207
  Receipt Date: 20111017
  Transmission Date: 20120403
  Serious: Yes (Other)
  Sender: FDA-Public Use
  Company Number: US-ROCHE-1002317

PATIENT
  Sex: Female

DRUGS (1)
  1. XOLAIR [Suspect]
     Indication: ALLERGY TO ANIMAL
     Route: 065

REACTIONS (3)
  - OROPHARYNGEAL PAIN [None]
  - CHEST DISCOMFORT [None]
  - BLOOD PRESSURE DECREASED [None]
